FAERS Safety Report 6019530-4 (Version None)
Quarter: 2008Q4

REPORT INFORMATION
  Report Type: 
  Country: None (occurrence: None)
  Receive Date: 20081224
  Receipt Date: 20081217
  Transmission Date: 20090506
  Serious: Yes (Hospitalization)
  Sender: FDA-Public Use
  Company Number: US-JNJFOC-20081105072

PATIENT
  Sex: Female
  Weight: 34.7 kg

DRUGS (5)
  1. INFLIXIMAB [Suspect]
     Indication: INFLAMMATORY BOWEL DISEASE
     Route: 042
  2. REMICADE [Suspect]
     Indication: INFLAMMATORY BOWEL DISEASE
     Route: 042
  3. FOLIC ACID [Concomitant]
  4. ZOFRAN [Concomitant]
  5. PROBIOTICS [Concomitant]

REACTIONS (2)
  - INTESTINAL STENOSIS [None]
  - RETROPERITONEAL ABSCESS [None]
